FAERS Safety Report 12782252 (Version 1)
Quarter: 2016Q3

REPORT INFORMATION
  Report Type: Spontaneous
  Country: US (occurrence: US)
  Receive Date: 20160927
  Receipt Date: 20160927
  Transmission Date: 20161109
  Serious: Yes (Other)
  Sender: FDA-Public Use
  Company Number: US-BEH-200813907

PATIENT
  Age: 14 Year
  Sex: Female
  Weight: 90.72 kg

DRUGS (2)
  1. PRIVIGEN [Suspect]
     Active Substance: HUMAN IMMUNOGLOBULIN G
     Indication: MULTIPLE SCLEROSIS
  2. PRIVIGEN [Suspect]
     Active Substance: HUMAN IMMUNOGLOBULIN G
     Indication: SARCOIDOSIS
     Dosage: DAILY DOSE QUANTITY: .4, DAILY DOSE UNIT: G/KG B.W.
     Route: 042
     Dates: start: 20080721, end: 20080721

REACTIONS (6)
  - Headache [Recovered/Resolved]
  - Pyrexia [Recovered/Resolved]
  - Gastrooesophageal reflux disease [Recovered/Resolved]
  - Musculoskeletal stiffness [Recovered/Resolved]
  - Migraine [Recovered/Resolved]
  - Meningitis aseptic [Recovered/Resolved]

NARRATIVE: CASE EVENT DATE: 20080722
